FAERS Safety Report 5013705-9 (Version None)
Quarter: 2006Q2

REPORT INFORMATION
  Report Type: 
  Country: None (occurrence: None)
  Receive Date: 20060530
  Receipt Date: 20060126
  Transmission Date: 20061013
  Serious: Yes (Death, Life-Threatening, Other)
  Sender: FDA-Public Use
  Company Number: FR-BRISTOL-MYERS SQUIBB COMPANY-13268263

PATIENT
  Age: 76 Year
  Sex: Female

DRUGS (11)
  1. GLUCOPHAGE [Suspect]
     Indication: DIABETES MELLITUS NON-INSULIN-DEPENDENT
     Route: 048
     Dates: start: 20001201, end: 20021030
  2. ASPIRIN [Concomitant]
  3. ZESTORETIC [Concomitant]
  4. SOTALOL HCL [Concomitant]
  5. TAREG [Concomitant]
  6. BURINEX [Concomitant]
     Route: 048
  7. OGAST [Concomitant]
     Route: 048
  8. TRINIPATCH [Concomitant]
  9. VASTAREL [Concomitant]
  10. HYPERIUM [Concomitant]
  11. MORPHINE SULFATE [Concomitant]

REACTIONS (21)
  - ABDOMINAL PAIN [None]
  - BACTERAEMIA [None]
  - CARDIAC ARREST [None]
  - CEREBROVASCULAR ACCIDENT [None]
  - CONSTIPATION [None]
  - DEHYDRATION [None]
  - DISORIENTATION [None]
  - GASTRIC ULCER [None]
  - GASTRIC ULCER HAEMORRHAGE [None]
  - HAEMODIALYSIS [None]
  - HYPERKALAEMIA [None]
  - HYPERLACTACIDAEMIA [None]
  - HYPOTHERMIA [None]
  - ISCHAEMIC STROKE [None]
  - LACTIC ACIDOSIS [None]
  - MALAISE [None]
  - NAUSEA [None]
  - RENAL FAILURE ACUTE [None]
  - SEPTIC SHOCK [None]
  - VERTIGO [None]
  - VOMITING [None]
